FAERS Safety Report 5450947-2 (Version None)
Quarter: 2007Q3

REPORT INFORMATION
  Report Type: 
  Country: None (occurrence: None)
  Receive Date: 20070910
  Receipt Date: 20070329
  Transmission Date: 20080115
  Serious: Yes (Congenital Anomaly)
  Sender: FDA-Public Use
  Company Number: WAES 0708USA04369

PATIENT
  Sex: Female

DRUGS (2)
  1. SINGULAIR [Suspect]
     Indication: ASTHMA
     Dosage: PO
     Route: 048
  2. INHL CORTICOSTEROIDS (UNSPECIFIED) UNK [Suspect]
     Indication: ASTHMA
     Dosage: INH
     Route: 055

REACTIONS (2)
  - DRUG EXPOSURE DURING PREGNANCY [None]
  - NEUROFIBROMATOSIS [None]
